FAERS Safety Report 15328961 (Version 1)
Quarter: 2018Q3

REPORT INFORMATION
  Report Type: Spontaneous
  Country: CA (occurrence: CA)
  Receive Date: 20180829
  Receipt Date: 20180829
  Transmission Date: 20181010
  Serious: Yes (Other)
  Sender: FDA-Public Use
  Company Number: CA-CPL-000644

PATIENT
  Age: 59 Year
  Sex: Male

DRUGS (2)
  1. MOXIFLOXACIN/MOXIFLOXACIN HYDROCHLORIDE [Concomitant]
     Indication: OSTEOMYELITIS
     Route: 048
  2. METRONIDAZOLE. [Suspect]
     Active Substance: METRONIDAZOLE
     Indication: OSTEOMYELITIS
     Dosage: 750MG VERU SIX HOURS
     Route: 048

REACTIONS (2)
  - Overdose [Unknown]
  - Neurotoxicity [Recovered/Resolved]
